FAERS Safety Report 22260131 (Version 3)
Quarter: 2024Q1

REPORT INFORMATION
  Report Type: Spontaneous
  Country: GB (occurrence: GB)
  Receive Date: 20230427
  Receipt Date: 20240104
  Transmission Date: 20240409
  Serious: Yes (Hospitalization, Other)
  Sender: FDA-Public Use
  Company Number: GB-ROCHE-3327588

PATIENT

DRUGS (18)
  1. PREDNISOLONE [Suspect]
     Active Substance: PREDNISOLONE
     Indication: Follicular lymphoma
     Dosage: UNK
     Route: 065
     Dates: start: 20221121
  2. PREDNISOLONE [Suspect]
     Active Substance: PREDNISOLONE
     Dosage: UNK, RECENT DOSE ADMINISTERED
     Route: 065
     Dates: start: 20230314
  3. CYCLOPHOSPHAMIDE [Suspect]
     Active Substance: CYCLOPHOSPHAMIDE
     Indication: Follicular lymphoma
     Dosage: UNK
     Route: 065
     Dates: start: 20221121
  4. CYCLOPHOSPHAMIDE [Suspect]
     Active Substance: CYCLOPHOSPHAMIDE
     Dosage: UNK, MOST RECENT DOSE ADMINISTERED
     Dates: start: 20230314
  5. OBINUTUZUMAB [Suspect]
     Active Substance: OBINUTUZUMAB
     Indication: Follicular lymphoma
     Dosage: UNK
     Route: 042
     Dates: start: 20221121
  6. OBINUTUZUMAB [Suspect]
     Active Substance: OBINUTUZUMAB
     Dosage: UNK, MOST RECENT DOSE ADMINISTERED
     Route: 042
     Dates: start: 20230314
  7. VINCRISTINE [Suspect]
     Active Substance: VINCRISTINE
     Indication: Follicular lymphoma
     Dosage: UNK
     Route: 065
     Dates: start: 20221121
  8. VINCRISTINE [Suspect]
     Active Substance: VINCRISTINE
     Dosage: UNK, RECENT DOSE ADMINISTERED
     Route: 065
     Dates: start: 20230314
  9. AMLODIPINE [Concomitant]
     Active Substance: AMLODIPINE BESYLATE
     Indication: Hypertension
     Dosage: 5 MG, QD
     Route: 048
     Dates: start: 2002
  10. ATORVASTATIN [Concomitant]
     Active Substance: ATORVASTATIN
     Indication: Transient ischaemic attack
     Dosage: 80 MG, QD
     Route: 048
     Dates: start: 202209
  11. CLOPIDOGREL [Concomitant]
     Active Substance: CLOPIDOGREL BISULFATE
     Indication: Transient ischaemic attack
     Dosage: 75 MG, QD
     Route: 048
     Dates: start: 2022
  12. GABAPENTIN [Concomitant]
     Active Substance: GABAPENTIN
     Indication: Spinal osteoarthritis
     Dosage: 600 MG, BID
     Route: 048
     Dates: start: 2015
  13. MOMETASONE [Concomitant]
     Active Substance: MOMETASONE
     Indication: Rash
     Dosage: 1 DOSAGE FORM, QD
     Route: 061
     Dates: start: 20221111
  14. ACETAMINOPHEN [Concomitant]
     Active Substance: ACETAMINOPHEN
     Indication: Pain
     Dosage: 1000 MG
     Route: 048
     Dates: start: 20221110
  15. ALBUTEROL [Concomitant]
     Active Substance: ALBUTEROL
     Indication: Chronic obstructive pulmonary disease
     Dosage: 1 DOSAGE FORM
     Route: 065
     Dates: start: 2017
  16. TAMSULOSIN [Concomitant]
     Active Substance: TAMSULOSIN
     Indication: Benign prostatic hyperplasia
     Dosage: 400 UG, QD
     Route: 048
     Dates: start: 2014
  17. TIOTROPIUM BROMIDE [Concomitant]
     Active Substance: TIOTROPIUM BROMIDE
     Indication: Chronic obstructive pulmonary disease
     Dosage: UNK, QD
     Route: 065
     Dates: start: 2002
  18. ENOPEN [Concomitant]
     Dosage: UNK

REACTIONS (2)
  - Infection [Recovered/Resolved]
  - Urinary tract infection [Recovered/Resolved]

NARRATIVE: CASE EVENT DATE: 20230115
